FAERS Safety Report 13289841 (Version 1)
Quarter: 2017Q1

REPORT INFORMATION
  Report Type: Spontaneous
  Country: US (occurrence: US)
  Receive Date: 20170302
  Receipt Date: 20170302
  Transmission Date: 20170428
  Serious: No
  Sender: FDA-Public Use
  Company Number: US-THE MEDICINES COMPANY-US-MDCO-16-00486

PATIENT
  Sex: Female

DRUGS (5)
  1. PENICILIN G [Suspect]
     Active Substance: PENICILLIN G
     Indication: GROIN ABSCESS
     Dosage: NOT REPORTED
     Route: 041
     Dates: start: 201610
  2. ORBACTIV [Suspect]
     Active Substance: ORITAVANCIN
     Indication: ACTINOMYCOSIS
  3. ORBACTIV [Suspect]
     Active Substance: ORITAVANCIN
     Indication: GROIN ABSCESS
     Dosage: NOT REPORTED
     Route: 041
     Dates: start: 20161111, end: 20161111
  4. LEVAQUIN [Concomitant]
     Active Substance: LEVOFLOXACIN
     Indication: PRODUCT USED FOR UNKNOWN INDICATION
     Dosage: NOT REPORTED
     Dates: start: 201611
  5. PENICILIN G [Suspect]
     Active Substance: PENICILLIN G
     Indication: ACTINOMYCOSIS

REACTIONS (6)
  - Erythema [Recovered/Resolved]
  - Off label use [Unknown]
  - Pruritus [Recovering/Resolving]
  - Swelling [Recovering/Resolving]
  - Dizziness [Unknown]
  - Rash [Recovered/Resolved]

NARRATIVE: CASE EVENT DATE: 20161111
